FAERS Safety Report 5061394-X (Version None)
Quarter: 2006Q3

REPORT INFORMATION
  Report Type: 
  Country: None (occurrence: None)
  Receive Date: 20060703
  Receipt Date: 20060405
  Transmission Date: 20061208
  Serious: No
  Sender: FDA-Public Use
  Company Number: 2006PV011557

PATIENT
  Age: 62 Year
  Sex: Female

DRUGS (3)
  1. SYMLIN [Suspect]
     Indication: DIABETES MELLITUS NON-INSULIN-DEPENDENT
     Dosage: 90 MCG; BID; SC
     Route: 058
     Dates: start: 20060321
  2. NOVOLOG [Concomitant]
  3. METFORMIN [Concomitant]

REACTIONS (2)
  - ANOREXIA [None]
  - DEPRESSION [None]
